FAERS Safety Report 6554429-6 (Version None)
Quarter: 2010Q1

REPORT INFORMATION
  Report Type: 
  Country: None (occurrence: None)
  Receive Date: 20100127
  Receipt Date: 20100119
  Transmission Date: 20100710
  Serious: Yes (Death)
  Sender: FDA-Public Use
  Company Number: GXKR2010DE00945

PATIENT
  Age: 68 Year
  Sex: Female
  Weight: 63.5 kg

DRUGS (11)
  1. HALOPERIDOL (NGX) [Suspect]
     Indication: SCHIZOPHRENIA, PARANOID TYPE
     Dosage: 5 MG, DAY 3
     Route: 065
  2. HALOPERIDOL (NGX) [Suspect]
     Dosage: 9 MG, DAY 5
     Route: 065
  3. HALOPERIDOL (NGX) [Suspect]
     Dosage: 13 MG, DAY 6
     Route: 065
  4. HALOPERIDOL (NGX) [Suspect]
     Dosage: 15 MG, DAY 7
     Route: 065
  5. OLANZAPINE [Suspect]
     Indication: SCHIZOPHRENIA, PARANOID TYPE
     Dosage: 15 MG, DAYS 1 TO 4
     Route: 065
  6. OLANZAPINE [Suspect]
     Dosage: 20 MG, DAYS 5 TO 7
     Route: 065
  7. LORAZEPAM [Concomitant]
     Dosage: 1.5 MG, (ON DAY 1 AND 2)
     Route: 048
  8. LORAZEPAM [Concomitant]
     Dosage: 4 MG, (ON DAY 3)
  9. LORAZEPAM [Concomitant]
     Dosage: 2 MG, (ON DAY 4 AND 5)
  10. LORAZEPAM [Concomitant]
     Dosage: 5 MG, (ON DAY 6)
  11. LORAZEPAM [Concomitant]
     Dosage: 3 MG, (ON DAY 7)

REACTIONS (6)
  - APNOEA [None]
  - CARDIAC ARREST [None]
  - OXYGEN SATURATION ABNORMAL [None]
  - PULMONARY EMBOLISM [None]
  - RESUSCITATION [None]
  - SYNCOPE [None]
